FAERS Safety Report 5806074-5 (Version None)
Quarter: 2008Q3

REPORT INFORMATION
  Report Type: 
  Country: None (occurrence: None)
  Receive Date: 20080709
  Receipt Date: 20080709
  Transmission Date: 20090109
  Serious: Yes (Life-Threatening, Hospitalization)
  Sender: FDA-Public Use
  Company Number: None

PATIENT
  Age: 83 Year
  Sex: Male

DRUGS (2)
  1. WARFARIN SODIUM [Suspect]
     Indication: DEEP VEIN THROMBOSIS
     Dosage: 5 MG EVERY DAY PO
     Route: 048
     Dates: start: 20071029, end: 20071107
  2. FLUCONAZOLE [Suspect]
     Dosage: 100 MG EVEY DAY PO
     Route: 048
     Dates: start: 20071031, end: 20071104

REACTIONS (4)
  - CONFUSIONAL STATE [None]
  - INTERNATIONAL NORMALISED RATIO INCREASED [None]
  - LOSS OF CONSCIOUSNESS [None]
  - SYNCOPE [None]
